FAERS Safety Report 6974194-8 (Version None)
Quarter: 2010Q3

REPORT INFORMATION
  Report Type: 
  Country: None (occurrence: None)
  Receive Date: 20100824
  Receipt Date: 20100514
  Transmission Date: 20110219
  Serious: No
  Sender: FDA-Public Use
  Company Number: 308890

PATIENT
  Sex: Female

DRUGS (2)
  1. VICTOZA [Suspect]
     Indication: DIABETES MELLITUS
     Dosage: SUBCUTANEOUS
     Route: 058
     Dates: start: 20100513
  2. VICTOZA [Suspect]
     Indication: METABOLIC SYNDROME
     Dosage: SUBCUTANEOUS
     Route: 058
     Dates: start: 20100513

REACTIONS (3)
  - DIZZINESS [None]
  - FEELING COLD [None]
  - INSOMNIA [None]
